FAERS Safety Report 19055172 (Version 1)
Quarter: 2021Q1

REPORT INFORMATION
  Report Type: Spontaneous
  Country: CA (occurrence: CA)
  Receive Date: 20210325
  Receipt Date: 20210325
  Transmission Date: 20210420
  Serious: Yes (Other)
  Sender: FDA-Public Use
  Company Number: CA-ORION CORPORATION ORION PHARMA-21_00013740

PATIENT
  Sex: Female

DRUGS (19)
  1. FELODIPINE. [Concomitant]
     Active Substance: FELODIPINE
     Route: 065
  2. NORTRIPTYLINE HYDROCHLORIDE. [Concomitant]
     Active Substance: NORTRIPTYLINE HYDROCHLORIDE
     Indication: MIGRAINE
     Route: 065
  3. ROSUVASTATIN. [Concomitant]
     Active Substance: ROSUVASTATIN
     Route: 058
  4. CEFADROXIL. [Suspect]
     Active Substance: CEFADROXIL
     Indication: PRODUCT USED FOR UNKNOWN INDICATION
     Route: 065
  5. CHOLECALCIFEROL [Concomitant]
     Active Substance: CHOLECALCIFEROL
     Route: 065
  6. IODINE. [Suspect]
     Active Substance: IODINE
     Indication: PRODUCT USED FOR UNKNOWN INDICATION
     Route: 065
  7. HYDROXYCHLOROQUINE [Concomitant]
     Active Substance: HYDROXYCHLOROQUINE
     Route: 065
  8. XELJANZ [Suspect]
     Active Substance: TOFACITINIB CITRATE
     Indication: PRODUCT USED FOR UNKNOWN INDICATION
     Route: 065
  9. SULFAMETHOXAZOLE [Suspect]
     Active Substance: SULFAMETHOXAZOLE
     Route: 065
  10. METHOTREXATE (TRADE NAME UNKNOWN) [Suspect]
     Active Substance: METHOTREXATE
     Indication: PRODUCT USED FOR UNKNOWN INDICATION
     Route: 065
  11. DILAUDID [Concomitant]
     Active Substance: HYDROMORPHONE HYDROCHLORIDE
     Route: 065
  12. NAPROXEN. [Concomitant]
     Active Substance: NAPROXEN
     Route: 065
  13. CLINDAMYCIN HCL [Suspect]
     Active Substance: CLINDAMYCIN HYDROCHLORIDE
     Indication: PRODUCT USED FOR UNKNOWN INDICATION
     Route: 065
  14. CEFADROXIL. [Suspect]
     Active Substance: CEFADROXIL
     Route: 065
  15. HYDROXYCHLOROQUINE SULFATE. [Concomitant]
     Active Substance: HYDROXYCHLOROQUINE SULFATE
     Route: 065
  16. LINCOMYCIN. [Suspect]
     Active Substance: LINCOMYCIN
     Indication: PRODUCT USED FOR UNKNOWN INDICATION
     Route: 065
  17. ACTEMRA [Suspect]
     Active Substance: TOCILIZUMAB
     Indication: PRODUCT USED FOR UNKNOWN INDICATION
     Route: 065
  18. DEXILANT [Concomitant]
     Active Substance: DEXLANSOPRAZOLE
     Route: 065
  19. PREDNISONE. [Concomitant]
     Active Substance: PREDNISONE
     Route: 065

REACTIONS (4)
  - Drug hypersensitivity [Unknown]
  - Diarrhoea [Unknown]
  - Cellulitis [Unknown]
  - Liver injury [Unknown]
